FAERS Safety Report 4741630-7 (Version None)
Quarter: 2005Q3

REPORT INFORMATION
  Report Type: 
  Country: None (occurrence: None)
  Receive Date: 20050808
  Receipt Date: 20050723
  Transmission Date: 20060218
  Serious: Yes (Hospitalization, Other)
  Sender: FDA-Public Use
  Company Number: EWC050745157

PATIENT
  Age: 80 Year
  Sex: Female

DRUGS (3)
  1. HUMULIN-HUMAN INSULIN (RDNA) UNKNOWN FORMULATION (HU [Suspect]
     Indication: DIABETES MELLITUS
     Dosage: 28 IU DAY
     Dates: start: 20030101
  2. INSULIN [Suspect]
     Indication: DIABETES MELLITUS
     Dosage: 100 IU DAY
     Dates: start: 20030101
  3. ACENOCOUMAROL [Concomitant]

REACTIONS (5)
  - FALL [None]
  - FOOT FRACTURE [None]
  - PHARMACEUTICAL PRODUCT COMPLAINT [None]
  - TOE AMPUTATION [None]
  - VASCULAR STENOSIS [None]
